FAERS Safety Report 7138183-5 (Version None)
Quarter: 2010Q4

REPORT INFORMATION
  Report Type: 
  Country: None (occurrence: None)
  Receive Date: 20101206
  Receipt Date: 20101102
  Transmission Date: 20110411
  Serious: No
  Sender: FDA-Public Use
  Company Number: US-ABBOTT-10P-163-0683158-00

PATIENT
  Sex: Male
  Weight: 56.75 kg

DRUGS (2)
  1. CEFDINIR [Suspect]
     Indication: PHARYNGITIS STREPTOCOCCAL
     Dates: start: 20101019, end: 20101029
  2. ALLEGRA [Concomitant]
     Indication: SEASONAL ALLERGY

REACTIONS (2)
  - PRURITUS [None]
  - URTICARIA [None]
